FAERS Safety Report 8080336-6 (Version None)
Quarter: 2012Q1

REPORT INFORMATION
  Report Type: 
  Country: None (occurrence: None)
  Receive Date: 20120130
  Receipt Date: 20120120
  Transmission Date: 20120608
  Serious: Yes (Other)
  Sender: FDA-Public Use
  Company Number: FI-AMGEN-FINSP2011064258

PATIENT
  Age: 72 Year
  Sex: Female
  Weight: 95 kg

DRUGS (11)
  1. PRIMASPAN [Concomitant]
     Dosage: 100 MG, UNK
  2. PERINDOPRIL ERBUMINE [Concomitant]
     Dosage: UNK UNK, QD
  3. FURESIS [Concomitant]
     Dosage: 40 MG, BID
  4. PERINDOPRIL ERBUMINE [Concomitant]
     Dosage: 4 MG, UNK
  5. SPECICOR [Concomitant]
     Dosage: 47.5 MG, UNK
  6. DEVISOL [Concomitant]
     Dosage: 20 MCI/MUG, UNK
  7. PROLIA [Suspect]
     Indication: PRODUCT USED FOR UNKNOWN INDICATION
     Dosage: 60 MG, Q6MO
     Dates: start: 20110501
  8. VITAMIN D [Concomitant]
     Dosage: 20 MCI/MUG, QD
  9. DINIT [Concomitant]
     Dosage: UNK
  10. ORMOX [Concomitant]
     Dosage: 20 MG, BID
  11. SIMVASTATIN [Concomitant]
     Dosage: 40 MG, QD

REACTIONS (3)
  - ELECTROCARDIOGRAM QT PROLONGED [None]
  - RENAL FAILURE [None]
  - HYPOCALCAEMIA [None]
